FAERS Safety Report 5713228-5 (Version None)
Quarter: 2008Q2

REPORT INFORMATION
  Report Type: 
  Country: None (occurrence: None)
  Receive Date: 20080422
  Receipt Date: 19980406
  Transmission Date: 20081010
  Serious: Yes (Death)
  Sender: FDA-Public Use
  Company Number: DE-ROCHE-97445

PATIENT
  Sex: Male
  Weight: 70 kg

DRUGS (12)
  1. SAQUINAVIR [Suspect]
     Indication: HIV INFECTION
     Route: 048
     Dates: start: 19970320, end: 19970813
  2. SAQUINAVIR [Suspect]
     Route: 048
     Dates: start: 19970111, end: 19970319
  3. AZT [Concomitant]
     Indication: HIV INFECTION
     Dates: start: 19930801, end: 19970813
  4. COTRIM [Concomitant]
     Indication: PROPHYLAXIS
     Dates: start: 19960101, end: 19970813
  5. COTRIM [Concomitant]
     Dates: start: 19960101, end: 19970813
  6. LAMIVUDINE [Concomitant]
     Indication: HIV INFECTION
     Dates: start: 19960201, end: 19970301
  7. DOXIL [Concomitant]
     Indication: CHEMOTHERAPY
     Dates: start: 19961001, end: 19970813
  8. CIDOFOVIR [Concomitant]
     Dates: start: 19970101, end: 19970301
  9. CYMEVEN [Concomitant]
     Dates: start: 19970301, end: 19970813
  10. CYMEVEN [Concomitant]
     Dates: start: 19970301, end: 19970813
  11. ZERIT [Concomitant]
     Indication: HIV INFECTION
     Dates: start: 19970301, end: 19970813
  12. KLACID [Concomitant]
     Dates: start: 19970401, end: 19970813

REACTIONS (1)
  - DEATH [None]
